FAERS Safety Report 4489645-0 (Version None)
Quarter: 2004Q4

REPORT INFORMATION
  Report Type: 
  Country: None (occurrence: None)
  Receive Date: 20041026
  Receipt Date: 20041011
  Transmission Date: 20050328
  Serious: Yes (Hospitalization)
  Sender: FDA-Public Use
  Company Number: 239759

PATIENT
  Age: 59 Year
  Sex: Female
  Weight: 55.4 kg

DRUGS (3)
  1. INSULIN DETEMIR [Suspect]
     Dosage: 6 U, QD, SUBCUTANEOUS
     Route: 058
     Dates: start: 20040930
  2. NOVORAPID (INSULIN ASPART) SOLUTION FOR INJECTION, 100U/ML [Suspect]
     Indication: DIABETES MELLITUS INSULIN-DEPENDENT
     Dosage: 42 IU, QD, SUBCUTANEOUS
     Route: 058
     Dates: start: 20040930
  3. NARDIL [Concomitant]

REACTIONS (2)
  - CONVULSION [None]
  - DEPRESSED LEVEL OF CONSCIOUSNESS [None]
